FAERS Safety Report 24600489 (Version 1)
Quarter: 2024Q4

REPORT INFORMATION
  Report Type: Spontaneous
  Country: US (occurrence: US)
  Receive Date: 20241110
  Receipt Date: 20241110
  Transmission Date: 20250114
  Serious: No
  Sender: SANOFI AVENTIS
  Company Number: US-SA-2024SA321828

PATIENT
  Sex: Female
  Weight: 100.45 kg

DRUGS (10)
  1. DUPIXENT [Suspect]
     Active Substance: DUPILUMAB
     Indication: Dermatitis atopic
     Dosage: 300 MG, QOW
     Route: 058
     Dates: end: 20241023
  2. MODAFINIL [Concomitant]
     Active Substance: MODAFINIL
  3. IRON [Concomitant]
     Active Substance: IRON
  4. ROSUVASTATIN CALCIUM [Concomitant]
     Active Substance: ROSUVASTATIN CALCIUM
     Dosage: UNK
  5. OXYCODONE HYDROCHLORIDE [Concomitant]
     Active Substance: OXYCODONE HYDROCHLORIDE
  6. PROZAC [Concomitant]
     Active Substance: FLUOXETINE HYDROCHLORIDE
  7. ABILIFY [Concomitant]
     Active Substance: ARIPIPRAZOLE
  8. METFORMIN HYDROCHLORIDE [Concomitant]
     Active Substance: METFORMIN HYDROCHLORIDE
  9. LISINOPRIL [Concomitant]
     Active Substance: LISINOPRIL
  10. LANTUS [Concomitant]
     Active Substance: INSULIN GLARGINE

REACTIONS (1)
  - Fatigue [Unknown]
